FAERS Safety Report 4983745-4 (Version None)
Quarter: 2006Q1

REPORT INFORMATION
  Report Type: 
  Country: None (occurrence: None)
  Receive Date: 20060301
  Receipt Date: 20060104
  Transmission Date: 20060701
  Serious: No
  Sender: FDA-Public Use
  Company Number: S06-USA-00112-01

PATIENT
  Age: 74 Year
  Sex: Female

DRUGS (10)
  1. NAMENDA [Suspect]
     Indication: AMNESIA
     Dosage: 5 MG BID PO
     Route: 048
     Dates: start: 20051226
  2. NAMENDA [Suspect]
     Indication: AMNESIA
     Dosage: 5 MG QD PO
     Route: 048
     Dates: end: 20060103
  3. NAMENDA [Suspect]
     Indication: AMNESIA
     Dosage: 10 MG QD PO
     Route: 048
     Dates: start: 20060104
  4. NAMENDA [Suspect]
     Indication: AMNESIA
     Dosage: 5 MG QD PO
     Route: 048
     Dates: start: 20051219, end: 20051225
  5. ADVAIR DISKUS 100/50 [Concomitant]
  6. ALLEGRA D (FEXOFENADINE/PSEUDOEPHEDRINE) [Concomitant]
  7. NASACORT [Concomitant]
  8. PROVENTIL [Concomitant]
  9. BENICAR [Concomitant]
  10. PREMARIN [Concomitant]

REACTIONS (4)
  - CONFUSIONAL STATE [None]
  - DIZZINESS [None]
  - DYSARTHRIA [None]
  - SOMNOLENCE [None]
